FAERS Safety Report 4285879-9 (Version None)
Quarter: 2004Q1

REPORT INFORMATION
  Report Type: 
  Country: None (occurrence: None)
  Receive Date: 20040203
  Receipt Date: 20040119
  Transmission Date: 20041129
  Serious: No
  Sender: FDA-Public Use
  Company Number: 2004GB00118

PATIENT
  Age: 71 Year
  Sex: Male
  Weight: 85 kg

DRUGS (8)
  1. CRESTOR [Suspect]
     Indication: HYPERCHOLESTEROLAEMIA
     Dosage: 10 MG DAILY PO
     Route: 048
     Dates: start: 20031006, end: 20031230
  2. IPRATROPIUM BROMIDE [Concomitant]
  3. SALBUTAMOL [Concomitant]
  4. SALMETEROL [Concomitant]
  5. BECLOMETHASONE DIPROPIONATE [Concomitant]
  6. ASPIRIN [Concomitant]
  7. SIMVASTATIN [Concomitant]
  8. FINASTERIDE [Concomitant]

REACTIONS (3)
  - ERECTILE DYSFUNCTION [None]
  - LETHARGY [None]
  - PARAPSORIASIS [None]
